FAERS Safety Report 8257443-8 (Version None)
Quarter: 2012Q2

REPORT INFORMATION
  Report Type: 
  Country: None (occurrence: None)
  Receive Date: 20120403
  Receipt Date: 20120320
  Transmission Date: 20120825
  Serious: Yes (Hospitalization)
  Sender: FDA-Public Use
  Company Number: FR-ROCHE-1042599

PATIENT
  Sex: Male
  Weight: 70 kg

DRUGS (5)
  1. AVASTIN [Suspect]
     Indication: COLORECTAL CANCER METASTATIC
     Dosage: LAST DOSE WAS ADMINISTERED ON 02/MAR/2012 AND THE DOSE WAS 300 MG, CYCLE 9
     Route: 042
     Dates: start: 20111118
  2. FLUOROURACIL [Suspect]
     Indication: COLORECTAL CANCER METASTATIC
     Dosage: LAST DOSE WAS ADMINISTERED ON 10/FEB/2012 AND THE DOSE WAS 690 MG, CYCLE 9
     Route: 040
     Dates: start: 20111118
  3. OXALIPLATIN [Suspect]
     Indication: COLORECTAL CANCER METASTATIC
     Dosage: LAST DOSE WAS ADMINISTERED ON 02/MAR/2012 AND THE DOSE WAS 100 MG, CYCLE 9
     Route: 042
     Dates: start: 20111118
  4. LEVOLEUCOVORIN CALCIUM [Suspect]
     Indication: COLORECTAL CANCER METASTATIC
     Dosage: LAST DOSE WAS ADMINISTERED ON 02/MAR/2012 AND THE DOSE WAS 320 MG, CYCLE 9
     Route: 042
     Dates: start: 20111118
  5. FLUOROURACIL [Suspect]
     Dosage: LAST DOSE WAS ADMINISTERED ON 04/MAR/2012 AND THE DOSE WAS 2900 MG, CYCLE 9
     Route: 041
     Dates: start: 20111118

REACTIONS (3)
  - LUNG INFECTION [None]
  - LUNG DISORDER [None]
  - FEBRILE NEUTROPENIA [None]
